FAERS Safety Report 23783763 (Version 5)
Quarter: 2025Q3

REPORT INFORMATION
  Report Type: Spontaneous
  Country: US (occurrence: US)
  Receive Date: 20240425
  Receipt Date: 20250813
  Transmission Date: 20251021
  Serious: No
  Sender: BRISTOL-MYERS SQUIBB COMPANY
  Company Number: US-BRISTOL-MYERS SQUIBB COMPANY-2024-062249

PATIENT
  Age: 48 Year
  Sex: Female

DRUGS (2)
  1. POMALYST [Suspect]
     Active Substance: POMALIDOMIDE
     Indication: Plasma cell myeloma
     Dates: start: 20230501
  2. POMALYST [Suspect]
     Active Substance: POMALIDOMIDE

REACTIONS (2)
  - Human chorionic gonadotropin increased [Unknown]
  - Off label use [Unknown]
